FAERS Safety Report 9442691 (Version 1)
Quarter: 2013Q3

REPORT INFORMATION
  Report Type: Spontaneous
  Country: RS (occurrence: RS)
  Receive Date: 20130806
  Receipt Date: 20130806
  Transmission Date: 20140515
  Serious: Yes (Other)
  Sender: FDA-Public Use
  Company Number: PHHY2013RS081533

PATIENT
  Age: 33 Year
  Sex: Female

DRUGS (3)
  1. PREDNISONE [Suspect]
     Dosage: 1 MG/KG, UNK
     Route: 048
  2. PREDNISONE [Suspect]
     Dosage: 30 MG, UNK
  3. GLUCOCORTICOSTEROIDS [Suspect]
     Route: 051

REACTIONS (4)
  - Glomerulonephritis [Unknown]
  - Proteinuria [Unknown]
  - Haematuria [Unknown]
  - Cushing^s syndrome [Unknown]
